FAERS Safety Report 6678820-2 (Version None)
Quarter: 2010Q2

REPORT INFORMATION
  Report Type: 
  Country: None (occurrence: None)
  Receive Date: 20100413
  Receipt Date: 20100405
  Transmission Date: 20101027
  Serious: Yes (Other)
  Sender: FDA-Public Use
  Company Number: CA-ASTRAZENECA-2010SE09980

PATIENT
  Age: 55 Year
  Sex: Female

DRUGS (4)
  1. SYMBICORT [Suspect]
     Dosage: 200 MCG
     Route: 055
     Dates: start: 20090701, end: 20090701
  2. SYMBICORT [Suspect]
     Route: 055
     Dates: start: 20100201
  3. VALTREX [Concomitant]
  4. SYNTHROID [Concomitant]

REACTIONS (2)
  - DRUG INEFFECTIVE [None]
  - DYSPNOEA [None]
